FAERS Safety Report 14686190 (Version 1)
Quarter: 2018Q1

REPORT INFORMATION
  Report Type: Report from Study
  Country: BR (occurrence: BR)
  Receive Date: 20180327
  Receipt Date: 20180327
  Transmission Date: 20180509
  Serious: Yes (Other)
  Sender: FDA-Public Use
  Company Number: BR-JNJFOC-20180330129

PATIENT
  Sex: Female
  Weight: 65 kg

DRUGS (2)
  1. CYTIDINE/HYDROXOCOBALAMIN ACETATE/URIDINE [Concomitant]
     Route: 065
  2. SIMPONI [Suspect]
     Active Substance: GOLIMUMAB
     Indication: RHEUMATOID ARTHRITIS
     Route: 058
     Dates: start: 20170116

REACTIONS (2)
  - Ankle operation [Unknown]
  - Neoplasm [Unknown]
